FAERS Safety Report 21600343 (Version 1)
Quarter: 2022Q4

REPORT INFORMATION
  Report Type: Report from Study
  Country: US (occurrence: US)
  Receive Date: 20221116
  Receipt Date: 20221116
  Transmission Date: 20230113
  Serious: No
  Sender: FDA-Public Use
  Company Number: US-002147023-NVSC2022US257658

PATIENT
  Age: 72 Year
  Sex: Female

DRUGS (1)
  1. COSENTYX [Suspect]
     Active Substance: SECUKINUMAB
     Indication: Product used for unknown indication
     Dosage: 300 MG, EVERY 4 WEEKS
     Route: 058

REACTIONS (7)
  - Psoriasis [Unknown]
  - Psoriasis [Unknown]
  - Dry skin [Unknown]
  - Skin exfoliation [Unknown]
  - Pain [Unknown]
  - Skin plaque [Unknown]
  - Eczema [Unknown]

NARRATIVE: CASE EVENT DATE: 20220421
